FAERS Safety Report 4448709-8 (Version None)
Quarter: 2004Q3

REPORT INFORMATION
  Report Type: 
  Country: None (occurrence: None)
  Receive Date: 20040909
  Receipt Date: 20040902
  Transmission Date: 20050211
  Serious: Yes (Disabling)
  Sender: FDA-Public Use
  Company Number: THQ2004A00811

PATIENT
  Age: 78 Year
  Sex: Female

DRUGS (1)
  1. LANSOPRAZOLE [Suspect]
     Indication: GASTRIC DISORDER
     Dosage: 30 MG (UNKNOWN) PER ORAL
     Route: 048
     Dates: start: 20031001, end: 20040101

REACTIONS (2)
  - ANTINUCLEAR ANTIBODY POSITIVE [None]
  - LUPUS-LIKE SYNDROME [None]
